FAERS Safety Report 20798145 (Version 2)
Quarter: 2022Q2

REPORT INFORMATION
  Report Type: Spontaneous
  Country: GB (occurrence: GB)
  Receive Date: 20220507
  Receipt Date: 20220511
  Transmission Date: 20220721
  Serious: Yes (Other)
  Sender: FDA-Public Use
  Company Number: GB-MYLANLABS-2013S1000616

PATIENT
  Age: 65 Year
  Sex: Female

DRUGS (13)
  1. MEBEVERINE [Suspect]
     Active Substance: MEBEVERINE
     Indication: Irritable bowel syndrome
     Dosage: 135 MILLIGRAM
     Route: 065
     Dates: start: 20121229
  2. ACETAMINOPHEN [Suspect]
     Active Substance: ACETAMINOPHEN
     Indication: Headache
     Dosage: UNK
     Route: 065
  3. DIAZEPAM [Suspect]
     Active Substance: DIAZEPAM
     Indication: Muscle spasms
     Dosage: 2 MILLIGRAM
     Route: 065
  4. DIAZEPAM [Suspect]
     Active Substance: DIAZEPAM
     Dosage: 5 MILLIGRAM, FOUR TIMES/DAY
     Route: 065
  5. DIAZEPAM [Suspect]
     Active Substance: DIAZEPAM
     Dosage: 5 MILLIGRAM
     Route: 065
     Dates: start: 2006
  6. LEVOTHYROXINE [Suspect]
     Active Substance: LEVOTHYROXINE
     Indication: Product used for unknown indication
     Dosage: 100 MILLIGRAM
     Route: 065
  7. LEVOTHYROXINE [Suspect]
     Active Substance: LEVOTHYROXINE
     Dosage: 25 MILLIGRAM
     Route: 065
  8. CO-DYDRAMOL [Suspect]
     Active Substance: ACETAMINOPHEN\DIHYDROCODEINE
     Indication: Headache
     Dosage: UNK
     Route: 065
  9. INSULIN ASPART [Suspect]
     Active Substance: INSULIN ASPART
     Indication: Diabetes mellitus
     Dosage: UNK
     Route: 065
     Dates: start: 201203
  10. INSULIN NOS [Concomitant]
     Active Substance: INSULIN NOS
     Indication: Diabetes mellitus
     Dosage: UNK
     Route: 065
  11. MEBEVERINE HYDROCHLORIDE [Concomitant]
     Active Substance: MEBEVERINE HYDROCHLORIDE
     Indication: Product used for unknown indication
     Dosage: UNK
     Route: 065
     Dates: start: 20130328
  12. MEBEVERINE HYDROCHLORIDE [Concomitant]
     Active Substance: MEBEVERINE HYDROCHLORIDE
     Indication: Product used for unknown indication
     Dosage: UNK
     Route: 065
  13. PROTAMINE [Suspect]
     Active Substance: PROTAMINE
     Indication: Diabetes mellitus
     Dosage: 1 DOSAGE FORM, ONCE A DAY
     Route: 065
     Dates: start: 201201

REACTIONS (21)
  - Cyst [Unknown]
  - Chronic kidney disease [Unknown]
  - Dairy intolerance [Unknown]
  - Lactose intolerance [Unknown]
  - Mood swings [Unknown]
  - Panic attack [Unknown]
  - Anxiety [Unknown]
  - Memory impairment [Unknown]
  - Gait disturbance [Unknown]
  - Myopathy [Unknown]
  - Diabetes mellitus [Unknown]
  - Polyneuropathy [Unknown]
  - Muscle spasms [Unknown]
  - Headache [Unknown]
  - Arthralgia [Unknown]
  - Drug interaction [Unknown]
  - Drug ineffective [Unknown]
  - Muscle twitching [Unknown]
  - Dyskinesia [Unknown]
  - Constipation [Unknown]
  - Discomfort [Unknown]
